FAERS Safety Report 22245231 (Version 2)
Quarter: 2023Q2

REPORT INFORMATION
  Report Type: Other
  Country: JP (occurrence: None)
  Receive Date: 20230424
  Receipt Date: 20230607
  Transmission Date: 20230722
  Serious: Yes (Hospitalization)
  Sender: FDA-Public Use
  Company Number: JP-ROCHE-3333274

PATIENT
  Age: 84 Year
  Sex: Female

DRUGS (6)
  1. BEVACIZUMAB [Suspect]
     Active Substance: BEVACIZUMAB
     Indication: Rectal cancer stage IV
     Route: 065
  2. GIMERACIL\OTERACIL\TEGAFUR [Suspect]
     Active Substance: GIMERACIL\OTERACIL\OTERACIL POTASSIUM\TEGAFUR
     Indication: Rectal cancer stage IV
     Route: 065
  3. ANAMORELIN [Concomitant]
     Active Substance: ANAMORELIN
     Indication: Cachexia
     Route: 048
  4. AMIODARONE [Concomitant]
     Active Substance: AMIODARONE
     Indication: Ventricular tachycardia
     Route: 042
  5. ADENOSINE TRIPHOSPHATE [Concomitant]
     Active Substance: ADENOSINE TRIPHOSPHATE
     Indication: Ventricular tachycardia
  6. LIDOCAINE [Concomitant]
     Active Substance: LIDOCAINE
     Indication: Ventricular tachycardia

REACTIONS (1)
  - Decreased appetite [Unknown]
